FAERS Safety Report 8297171-6 (Version None)
Quarter: 2012Q2

REPORT INFORMATION
  Report Type: 
  Country: None (occurrence: None)
  Receive Date: 20120419
  Receipt Date: 20120413
  Transmission Date: 20120825
  Serious: No
  Sender: FDA-Public Use
  Company Number: US-PFIZER INC-2012093936

PATIENT
  Sex: Male
  Weight: 71.655 kg

DRUGS (6)
  1. SUTENT [Suspect]
     Indication: RENAL CELL CARCINOMA
     Dosage: 50 MG, CYCLE IS 42 DAYS (28 ACTIVE DAYS)
     Dates: start: 20120402
  2. WARFARIN [Concomitant]
     Indication: PULMONARY EMBOLISM
     Dosage: 6 MG, UNK
  3. OXYCODONE [Concomitant]
     Indication: RENAL PAIN
     Dosage: UNK
  4. WARFARIN [Concomitant]
     Indication: VENA CAVA THROMBOSIS
  5. METOPROLOL [Concomitant]
     Dosage: UNK
  6. LASIX [Concomitant]
     Dosage: UNK, EVERY OTHER DAY

REACTIONS (2)
  - THROMBOSIS [None]
  - BLOOD URINE PRESENT [None]
